FAERS Safety Report 7336750-7 (Version None)
Quarter: 2011Q1

REPORT INFORMATION
  Report Type: 
  Country: None (occurrence: None)
  Receive Date: 20110308
  Receipt Date: 20110224
  Transmission Date: 20110831
  Serious: No
  Sender: FDA-Public Use
  Company Number: US-BIOGENIDEC-2011BI004012

PATIENT
  Age: 40 Year
  Sex: Male

DRUGS (1)
  1. TYSABRI [Suspect]
     Indication: MULTIPLE SCLEROSIS
     Route: 042
     Dates: start: 20110114

REACTIONS (8)
  - ANXIETY [None]
  - FATIGUE [None]
  - NASOPHARYNGITIS [None]
  - HEADACHE [None]
  - MEMORY IMPAIRMENT [None]
  - BALANCE DISORDER [None]
  - MUSCLE TIGHTNESS [None]
  - PRURITUS [None]
